FAERS Safety Report 5358052-0 (Version None)
Quarter: 2007Q2

REPORT INFORMATION
  Report Type: 
  Country: None (occurrence: None)
  Receive Date: 20070530
  Receipt Date: 20061030
  Transmission Date: 20071010
  Serious: Yes (Hospitalization)
  Sender: FDA-Public Use
  Company Number: US200611001134

PATIENT
  Sex: Female

DRUGS (1)
  1. ZYPREXA [Suspect]
     Dosage: 5 MG
     Dates: start: 20060202, end: 20060208

REACTIONS (3)
  - AMNESIA [None]
  - CONFUSIONAL STATE [None]
  - HALLUCINATION [None]
